FAERS Safety Report 6479655-6 (Version None)
Quarter: 2009Q4

REPORT INFORMATION
  Report Type: 
  Country: None (occurrence: None)
  Receive Date: 20091207
  Receipt Date: 20091207
  Transmission Date: 20100525
  Serious: Yes (Hospitalization)
  Sender: FDA-Public Use
  Company Number: None

PATIENT
  Sex: Male
  Weight: 67.6 kg

DRUGS (2)
  1. CARBOPLATIN [Suspect]
     Dosage: 1500 MG
  2. PACLITAXEL [Suspect]
     Dosage: 503.8 MG

REACTIONS (26)
  - ANAEMIA [None]
  - ANXIETY [None]
  - ASTHENIA [None]
  - BRONCHITIS [None]
  - CARDIAC MURMUR [None]
  - CHRONIC OBSTRUCTIVE PULMONARY DISEASE [None]
  - CONSTIPATION [None]
  - DECREASED APPETITE [None]
  - DEEP VEIN THROMBOSIS [None]
  - DEHYDRATION [None]
  - DIZZINESS [None]
  - EJECTION FRACTION DECREASED [None]
  - INCREASED UPPER AIRWAY SECRETION [None]
  - MALNUTRITION [None]
  - NAUSEA [None]
  - ODYNOPHAGIA [None]
  - OESOPHAGITIS [None]
  - ORTHOSTATIC HYPOTENSION [None]
  - PNEUMONIA [None]
  - PRODUCTIVE COUGH [None]
  - PULMONARY EMBOLISM [None]
  - SINUS TACHYCARDIA [None]
  - SPUTUM PURULENT [None]
  - TRICUSPID VALVE INCOMPETENCE [None]
  - UNEVALUABLE EVENT [None]
  - WEIGHT DECREASED [None]
